FAERS Safety Report 19438564 (Version 1)
Quarter: 2021Q2

REPORT INFORMATION
  Report Type: Spontaneous
  Country: TR (occurrence: TR)
  Receive Date: 20210619
  Receipt Date: 20210619
  Transmission Date: 20210717
  Serious: Yes (Hospitalization, Other)
  Sender: FDA-Public Use
  Company Number: TR-MACLEODS PHARMACEUTICALS US LTD-MAC2021031526

PATIENT

DRUGS (1)
  1. SILDENAFIL. [Suspect]
     Active Substance: SILDENAFIL
     Indication: PRODUCT USED FOR UNKNOWN INDICATION
     Dosage: 2 DOSAGE FORM, 1 TOTAL
     Route: 065

REACTIONS (8)
  - Alcohol interaction [Unknown]
  - Altered state of consciousness [Unknown]
  - Hemiplegia [Not Recovered/Not Resolved]
  - Hypotension [Recovered/Resolved]
  - Aphasia [Not Recovered/Not Resolved]
  - Ischaemic stroke [Not Recovered/Not Resolved]
  - Aphasia [Unknown]
  - Cerebral infarction [Not Recovered/Not Resolved]
